FAERS Safety Report 9034516 (Version 1)
Quarter: 2013Q1

REPORT INFORMATION
  Report Type: Spontaneous
  Country: JP (occurrence: None)
  Receive Date: 20130111
  Receipt Date: 20130111
  Transmission Date: 20140127
  Serious: Yes (Other)
  Sender: FDA-Public Use
  Company Number: B0857061A

PATIENT
  Age: 66 Year
  Sex: Male

DRUGS (3)
  1. CARVEDILOL (FORMULATION UNKNOWN) (CARVEDILOL) [Suspect]
     Indication: ATRIAL FIBRILLATION
  2. AMIODARONE (FORMULATION UNKNOWN) (AMIODARONE) [Suspect]
     Indication: ATRIAL FIBRILLATION
  3. MEDIGOXIN (FORMULATION UNKNOWN) (MEDIGOXIN) [Suspect]
     Indication: PRODUCT USED FOR UNKNOWN INDICATION

REACTIONS (5)
  - Torsade de pointes [None]
  - Bradycardia [None]
  - Atrial fibrillation [None]
  - Atrioventricular block complete [None]
  - Drug interaction [None]
